FAERS Safety Report 21055021 (Version 1)
Quarter: 2022Q3

REPORT INFORMATION
  Report Type: Report from Study
  Country: PR (occurrence: PR)
  Receive Date: 20220707
  Receipt Date: 20220707
  Transmission Date: 20221027
  Serious: Yes (Death, Hospitalization)
  Sender: FDA-Public Use
  Company Number: PR-ABBVIE-22K-131-4451969-00

PATIENT
  Sex: Male
  Weight: 69.916 kg

DRUGS (1)
  1. VENCLEXTA [Suspect]
     Active Substance: VENETOCLAX
     Indication: Acute myeloid leukaemia
     Route: 048

REACTIONS (3)
  - Acute myeloid leukaemia [Fatal]
  - Unevaluable event [Not Recovered/Not Resolved]
  - Haemoglobin decreased [Not Recovered/Not Resolved]
